FAERS Safety Report 20207750 (Version 1)
Quarter: 2021Q4

REPORT INFORMATION
  Report Type: Spontaneous
  Country: US (occurrence: US)
  Receive Date: 20211220
  Receipt Date: 20211220
  Transmission Date: 20220303
  Serious: Yes (Other)
  Sender: FDA-Public Use
  Company Number: US-NOVARTISPH-NVSC2021US284861

PATIENT
  Age: 69 Year
  Sex: Female

DRUGS (3)
  1. ALPRAZOLAM [Suspect]
     Active Substance: ALPRAZOLAM
     Indication: Anxiety
     Dosage: 0.5 MG, QD
     Route: 065
  2. ALPRAZOLAM [Suspect]
     Active Substance: ALPRAZOLAM
     Indication: Depression
     Dosage: 2 MG, QD(SLOWLYINCREASED THROUGHOUT THE 18-YEAR DURATION)
     Route: 065
  3. ALPRAZOLAM [Suspect]
     Active Substance: ALPRAZOLAM
     Dosage: UNK (SLOW TAPER)
     Route: 065

REACTIONS (5)
  - Drug use disorder [Unknown]
  - Withdrawal syndrome [Unknown]
  - Palpitations [Unknown]
  - Dizziness [Unknown]
  - Affective disorder [Unknown]
